FAERS Safety Report 22059535 (Version 1)
Quarter: 2023Q1

REPORT INFORMATION
  Report Type: Report from Study
  Country: BR (occurrence: BR)
  Receive Date: 20230303
  Receipt Date: 20230303
  Transmission Date: 20230418
  Serious: Yes (Other)
  Sender: FDA-Public Use
  Company Number: BR-002147023-NVSC2023BR045528

PATIENT
  Sex: Female

DRUGS (5)
  1. ENTRESTO [Suspect]
     Active Substance: SACUBITRIL\VALSARTAN
     Indication: Cardiac disorder
     Dosage: 100 MG, BID (100 MG 60) (TWO PER DAY, ONE AT 9AM AND ONE AT 9PM)
     Route: 065
  2. LOSARTAN [Suspect]
     Active Substance: LOSARTAN
     Indication: Hypertension
     Dosage: UNK
     Route: 065
  3. LOSARTAN [Suspect]
     Active Substance: LOSARTAN
     Indication: Cardiac disorder
  4. CARVEDILOL [Suspect]
     Active Substance: CARVEDILOL
     Indication: Cardiac disorder
     Dosage: UNK
     Route: 065
  5. CARBOXYMETHYLCELLULOSE SODIUM\GLYCERIN [Concomitant]
     Active Substance: CARBOXYMETHYLCELLULOSE SODIUM\GLYCERIN
     Indication: Product used for unknown indication
     Dosage: UNK
     Route: 065

REACTIONS (5)
  - Cataract [Unknown]
  - Visual impairment [Unknown]
  - Myopia [Unknown]
  - Product use in unapproved indication [Unknown]
  - Drug ineffective [Unknown]
